FAERS Safety Report 10936469 (Version 1)
Quarter: 2015Q1

REPORT INFORMATION
  Report Type: Spontaneous
  Country: US (occurrence: None)
  Receive Date: 20150212
  Receipt Date: 20150212
  Transmission Date: 20150721
  Serious: No
  Sender: FDA-Public Use
  Company Number: TPA2011A05426

PATIENT
  Age: 68 Year
  Sex: Male
  Weight: 89.36 kg

DRUGS (8)
  1. ASPIRIN. [Concomitant]
     Active Substance: ASPIRIN
  2. TOPROL (METOPROLOL SUCCINATE) [Concomitant]
  3. MICARDIS [Concomitant]
     Active Substance: TELMISARTAN
  4. LIPITOR [Concomitant]
     Active Substance: ATORVASTATIN CALCIUM
  5. HYDROCODONE [Concomitant]
     Active Substance: HYDROCODONE
  6. PREDNISONE. [Concomitant]
     Active Substance: PREDNISONE
  7. RANEXA (RANOLAZINE) [Concomitant]
  8. ULORIC [Suspect]
     Active Substance: FEBUXOSTAT
     Indication: GOUT
     Dosage: 1 IN 1 D
     Route: 048

REACTIONS (2)
  - Gout [None]
  - Oedema peripheral [None]
